FAERS Safety Report 4646230-5 (Version None)
Quarter: 2005Q2

REPORT INFORMATION
  Report Type: 
  Country: None (occurrence: None)
  Receive Date: 20050427
  Receipt Date: 20041129
  Transmission Date: 20051028
  Serious: Yes (Hospitalization)
  Sender: FDA-Public Use
  Company Number: JP-ROCHE-387339

PATIENT
  Age: 71 Year
  Sex: Male
  Weight: 53.3 kg

DRUGS (14)
  1. TORSEMIDE [Suspect]
     Route: 048
     Dates: start: 20030509, end: 20030602
  2. PANALDINE [Suspect]
     Indication: ACUTE MYOCARDIAL INFARCTION
     Route: 048
     Dates: start: 20030423, end: 20030602
  3. ASPIRIN [Suspect]
     Indication: THROMBOSIS PROPHYLAXIS
     Route: 048
     Dates: start: 20030424, end: 20030602
  4. ASPIRIN [Suspect]
     Route: 048
     Dates: start: 20030620
  5. GASTER [Suspect]
     Indication: PROPHYLAXIS AGAINST GASTROINTESTINAL ULCER
     Route: 048
     Dates: start: 20030424, end: 20030602
  6. ALDACTONE A [Suspect]
     Route: 048
     Dates: start: 20030425, end: 20030602
  7. ALDACTONE A [Suspect]
     Route: 048
     Dates: start: 20030620
  8. FRANDOL [Suspect]
     Indication: ANGINA PECTORIS
     Dosage: DRUG NAME: FRANDOL S.
     Route: 046
     Dates: start: 20030426
  9. DIOVAN [Suspect]
     Route: 048
     Dates: start: 20030428, end: 20030602
  10. SIGMART [Suspect]
     Indication: ANGINA PECTORIS
     Route: 048
     Dates: start: 20030428, end: 20030602
  11. HALFDIGOXIN KY [Suspect]
     Route: 048
     Dates: start: 20030429, end: 20030602
  12. LASIX [Suspect]
     Indication: DRUG USE FOR UNKNOWN INDICATION
     Route: 042
     Dates: start: 20030620, end: 20030622
  13. LASIX [Suspect]
     Route: 042
     Dates: start: 20030623, end: 20030625
  14. HEPARIN SODIUM [Concomitant]
     Indication: THROMBOSIS PROPHYLAXIS
     Route: 041
     Dates: start: 20030602, end: 20030621

REACTIONS (7)
  - BLOOD ALKALINE PHOSPHATASE INCREASED [None]
  - CARDIAC FAILURE CONGESTIVE [None]
  - CONDITION AGGRAVATED [None]
  - GAMMA-GLUTAMYLTRANSFERASE INCREASED [None]
  - JAUNDICE [None]
  - LIVER DISORDER [None]
  - LYMPHOCYTE STIMULATION TEST POSITIVE [None]
